FAERS Safety Report 6733371-1 (Version None)
Quarter: 2010Q2

REPORT INFORMATION
  Report Type: 
  Country: None (occurrence: None)
  Receive Date: 20100518
  Receipt Date: 20100506
  Transmission Date: 20101027
  Serious: Yes (Other)
  Sender: FDA-Public Use
  Company Number: 7004184

PATIENT
  Age: 63 Year
  Sex: Female

DRUGS (4)
  1. REBIF [Suspect]
     Indication: MULTIPLE SCLEROSIS
     Dosage: 44 MCG, 3 IN 1 WK, SUBCUTANEOUS, 44 MCG, 3 IN 1 WK, SUBCUTANEOUS
     Route: 058
     Dates: start: 20050401
  2. DIOVAN [Concomitant]
  3. ATENOLOL [Concomitant]
  4. LISINOPRIL WITH HYDROCHLOROTHIAZIDE (PRINZIDE) [Concomitant]

REACTIONS (6)
  - ANAEMIA [None]
  - ARTHRALGIA [None]
  - ARTHROPATHY [None]
  - CONSTIPATION [None]
  - HYPERHIDROSIS [None]
  - SCAR [None]
